FAERS Safety Report 9215144 (Version 4)
Quarter: 2015Q4

REPORT INFORMATION
  Report Type: Spontaneous
  Country: US (occurrence: US)
  Receive Date: 20130405
  Receipt Date: 20151021
  Transmission Date: 20160305
  Serious: No
  Sender: FDA-Public Use
  Company Number: US-009507513-1304USA002509

PATIENT
  Sex: Male
  Weight: 101.59 kg

DRUGS (1)
  1. PROPECIA [Suspect]
     Active Substance: FINASTERIDE
     Indication: ALOPECIA
     Dosage: 1 MG, QD
     Route: 048
     Dates: start: 19990427, end: 20110524

REACTIONS (13)
  - Lipoma [Unknown]
  - Breast tenderness [Unknown]
  - Gynaecomastia [Unknown]
  - Organic erectile dysfunction [Unknown]
  - Cognitive disorder [Not Recovered/Not Resolved]
  - Tinea cruris [Unknown]
  - Knee operation [Unknown]
  - Sexual dysfunction [Not Recovered/Not Resolved]
  - Breast mass [Unknown]
  - Folliculitis [Unknown]
  - Limb operation [Unknown]
  - Palpitations [Not Recovered/Not Resolved]
  - Chest pain [Unknown]

NARRATIVE: CASE EVENT DATE: 2006
